FAERS Safety Report 24571918 (Version 1)
Quarter: 2024Q4

REPORT INFORMATION
  Report Type: Report from Study
  Country: IN (occurrence: IN)
  Receive Date: 20241101
  Receipt Date: 20241101
  Transmission Date: 20250115
  Serious: Yes (Death, Other)
  Sender: ELI LILLY AND COMPANY
  Company Number: IN-Merck Healthcare KGaA-2024057059

PATIENT
  Age: 65 Year
  Sex: Female

DRUGS (1)
  1. CETUXIMAB [Suspect]
     Active Substance: CETUXIMAB
     Indication: Head and neck cancer metastatic
     Dosage: 500 MG, 2/M
     Route: 042
     Dates: start: 20240610

REACTIONS (6)
  - Death [Fatal]
  - Malignant neoplasm progression [Unknown]
  - Jaundice [Unknown]
  - Weight decreased [Unknown]
  - Asthenia [Unknown]
  - Off label use [Unknown]

NARRATIVE: CASE EVENT DATE: 20241005
